FAERS Safety Report 17130259 (Version 2)
Quarter: 2020Q1

REPORT INFORMATION
  Report Type: Spontaneous
  Country: US (occurrence: US)
  Receive Date: 20191209
  Receipt Date: 20200109
  Transmission Date: 20200409
  Serious: Yes (Death, Hospitalization, Other)
  Sender: FDA-Public Use
  Company Number: US-PFIZER INC-2019527366

PATIENT
  Age: 55 Year
  Sex: Male
  Weight: 89 kg

DRUGS (4)
  1. HEPARIN SODIUM. [Suspect]
     Active Substance: HEPARIN SODIUM
     Indication: PULMONARY EMBOLISM
     Dosage: UNK (18 UNITS/KG/HR)
     Route: 041
     Dates: start: 20191201, end: 20191203
  2. NOREPINEPHRINE. [Concomitant]
     Active Substance: NOREPINEPHRINE
     Dosage: UNK (0.1 MCG/KG/HR CONTINUOUS DRIP)
     Dates: start: 20191201, end: 20191203
  3. AZITHROMYCIN ANHYDROUS. [Concomitant]
     Active Substance: AZITHROMYCIN ANHYDROUS
     Dosage: 500 MG, 1X/DAY (Q 24 HR )
     Dates: start: 20191201, end: 20191203
  4. CEFEPRIME [Concomitant]
     Dosage: 2 G, 2X/DAY (Q 12 HR)
     Dates: start: 20191201, end: 20191203

REACTIONS (2)
  - Respiratory distress [Fatal]
  - Therapeutic product effect increased [Fatal]

NARRATIVE: CASE EVENT DATE: 201912
